FAERS Safety Report 6735589-0 (Version None)
Quarter: 2010Q2

REPORT INFORMATION
  Report Type: 
  Country: None (occurrence: None)
  Receive Date: 20100521
  Receipt Date: 20100514
  Transmission Date: 20101027
  Serious: Yes (Hospitalization)
  Sender: FDA-Public Use
  Company Number: CN-BAYER-201025684GPV

PATIENT
  Age: 62 Year
  Sex: Male

DRUGS (5)
  1. ASPIRIN [Suspect]
     Indication: ANTIPLATELET THERAPY
     Dates: start: 20080401
  2. PRAVASTATIN [Suspect]
     Indication: HYPERLIPIDAEMIA
     Dates: start: 20080401
  3. CEFUROXIME [Suspect]
     Indication: BACTERIAL INFECTION
     Dates: start: 20080401
  4. PLAVIX [Suspect]
     Indication: ANTIPLATELET THERAPY
     Dates: start: 20080401
  5. PLETAL [Suspect]
     Indication: ANTIPLATELET THERAPY
     Dates: start: 20080401

REACTIONS (13)
  - BLISTER [None]
  - CONJUNCTIVAL HYPERAEMIA [None]
  - ELECTROLYTE IMBALANCE [None]
  - GENITAL LESION [None]
  - NIKOLSKY'S SIGN [None]
  - ORAL DISORDER [None]
  - PYREXIA [None]
  - RASH GENERALISED [None]
  - SKIN EXFOLIATION [None]
  - SYSTEMIC LUPUS ERYTHEMATOSUS RASH [None]
  - TOXIC EPIDERMAL NECROLYSIS [None]
  - VISION BLURRED [None]
  - WOUND INFECTION STAPHYLOCOCCAL [None]
